FAERS Safety Report 11141477 (Version 1)
Quarter: 2015Q2

REPORT INFORMATION
  Report Type: Spontaneous
  Country: US (occurrence: US)
  Receive Date: 20150525
  Receipt Date: 20150525
  Transmission Date: 20150821
  Serious: No
  Sender: FDA-Public Use
  Company Number: US-JNJFOC-20140401407

PATIENT
  Sex: Male

DRUGS (1)
  1. RISPERDAL [Suspect]
     Active Substance: RISPERIDONE
     Indication: ATTENTION DEFICIT/HYPERACTIVITY DISORDER
     Route: 048
     Dates: start: 2007, end: 2008

REACTIONS (8)
  - Product use issue [Unknown]
  - Weight increased [Unknown]
  - Nipple swelling [Unknown]
  - Musculoskeletal chest pain [Unknown]
  - Emotional distress [Unknown]
  - Breast discolouration [Unknown]
  - Poor quality sleep [Unknown]
  - Gynaecomastia [Unknown]
